FAERS Safety Report 7705098-0 (Version None)
Quarter: 2011Q3

REPORT INFORMATION
  Report Type: 
  Country: None (occurrence: None)
  Receive Date: 20110823
  Receipt Date: 20110817
  Transmission Date: 20111222
  Serious: Yes (Hospitalization)
  Sender: FDA-Public Use
  Company Number: GB-B.I. PHARMACEUTICALS,INC./RIDGEFIELD-2011-UK-00725UK

PATIENT
  Sex: Female
  Weight: 77 kg

DRUGS (3)
  1. DABIGATRAN ETEXILATE [Suspect]
     Dosage: 220 MG
     Route: 048
     Dates: start: 20110420
  2. ASPIRIN [Concomitant]
     Indication: ATRIAL FIBRILLATION
     Dosage: 75 MG
     Route: 048
  3. DABIGATRAN ETEXILATE [Suspect]
     Indication: THROMBOSIS PROPHYLAXIS
     Dosage: 110 MG
     Route: 048
     Dates: start: 20110419

REACTIONS (2)
  - DIARRHOEA [None]
  - WOUND SECRETION [None]
